FAERS Safety Report 8267034-0 (Version None)
Quarter: 2012Q2

REPORT INFORMATION
  Report Type: 
  Country: None (occurrence: None)
  Receive Date: 20120409
  Receipt Date: 20120402
  Transmission Date: 20120825
  Serious: No
  Sender: FDA-Public Use
  Company Number: US-PFIZER INC-2012066213

PATIENT
  Sex: Female

DRUGS (1)
  1. PRISTIQ [Suspect]
     Dosage: 50 MG, 1X/DAY (ONE TABLET)
     Route: 048
     Dates: start: 20120101

REACTIONS (3)
  - DIZZINESS [None]
  - ENERGY INCREASED [None]
  - INSOMNIA [None]
